FAERS Safety Report 6331001-4 (Version None)
Quarter: 2009Q3

REPORT INFORMATION
  Report Type: 
  Country: None (occurrence: None)
  Receive Date: 20090827
  Receipt Date: 20090818
  Transmission Date: 20100115
  Serious: Yes (Death, Hospitalization)
  Sender: FDA-Public Use
  Company Number: A0770277A

PATIENT
  Age: 82 Year
  Sex: Female
  Weight: 59.1 kg

DRUGS (1)
  1. AVANDIA [Suspect]
     Dosage: 4MG TWICE PER DAY
     Route: 048
     Dates: start: 20050425, end: 20070101

REACTIONS (3)
  - CARDIAC FAILURE CONGESTIVE [None]
  - COLLAPSE OF LUNG [None]
  - MYOCARDIAL INFARCTION [None]
